FAERS Safety Report 21263386 (Version 4)
Quarter: 2022Q4

REPORT INFORMATION
  Report Type: Report from Study
  Country: CA (occurrence: CA)
  Receive Date: 20220829
  Receipt Date: 20221205
  Transmission Date: 20230113
  Serious: Yes (Other)
  Sender: FDA-Public Use
  Company Number: CA-NOVARTISPH-NVSC2022CA155999

PATIENT
  Sex: Female
  Weight: 114 kg

DRUGS (3)
  1. PIRFENIDONE [Suspect]
     Active Substance: PIRFENIDONE
     Indication: Idiopathic pulmonary fibrosis
     Dosage: 2403 MG, QD
     Route: 048
  2. PIRFENIDONE [Suspect]
     Active Substance: PIRFENIDONE
     Dosage: UNK
     Route: 048
  3. VENTOLIN [Concomitant]
     Active Substance: ALBUTEROL SULFATE
     Indication: Product used for unknown indication
     Dosage: UNK
     Route: 065

REACTIONS (7)
  - Arteriosclerosis coronary artery [Unknown]
  - Degenerative bone disease [Unknown]
  - Bronchiectasis [Unknown]
  - Aortic arteriosclerosis [Unknown]
  - Restrictive pulmonary disease [Unknown]
  - Pulmonary granuloma [Unknown]
  - Forced vital capacity [Unknown]
